FAERS Safety Report 5070157-0 (Version None)
Quarter: 2006Q3

REPORT INFORMATION
  Report Type: 
  Country: None (occurrence: None)
  Receive Date: 20060803
  Receipt Date: 20060220
  Transmission Date: 20061208
  Serious: Yes (Other)
  Sender: FDA-Public Use
  Company Number: 2006UW02862

PATIENT
  Sex: Female

DRUGS (10)
  1. SEROQUEL [Suspect]
     Indication: PREMENSTRUAL SYNDROME
     Route: 048
  2. SEROQUEL [Suspect]
     Route: 048
  3. SEROQUEL [Suspect]
     Route: 048
  4. PAXIL [Concomitant]
  5. PROZAC [Concomitant]
     Indication: DEPRESSION
  6. PROZAC [Concomitant]
     Indication: FIBROMYALGIA
  7. PROZAC [Concomitant]
     Indication: SERUM SEROTONIN DECREASED
  8. MELATONIN [Concomitant]
  9. ESTROGEN PATCH [Concomitant]
     Route: 061
  10. WELLBUTRIN [Concomitant]

REACTIONS (10)
  - ANXIETY [None]
  - CONVULSION [None]
  - DEPRESSION [None]
  - FEELING ABNORMAL [None]
  - HYSTERECTOMY [None]
  - ILL-DEFINED DISORDER [None]
  - INJURY [None]
  - MALAISE [None]
  - SELF-INJURIOUS IDEATION [None]
  - WEIGHT DECREASED [None]
